FAERS Safety Report 4678386-2 (Version None)
Quarter: 2005Q2

REPORT INFORMATION
  Report Type: 
  Country: None (occurrence: None)
  Receive Date: 20050531
  Receipt Date: 20050531
  Transmission Date: 20051028
  Serious: Yes (Other)
  Sender: FDA-Public Use
  Company Number: None

PATIENT
  Age: 18 Year
  Sex: Male
  Weight: 72.5755 kg

DRUGS (4)
  1. CELEXA [Suspect]
     Indication: DEPRESSION
     Dosage: 20 MG DAY ORAL
     Route: 048
     Dates: start: 20050219, end: 20050520
  2. CELEXA [Suspect]
     Indication: OBSESSIVE-COMPULSIVE DISORDER
     Dosage: 20 MG DAY ORAL
     Route: 048
     Dates: start: 20050219, end: 20050520
  3. CELEXA [Suspect]
     Indication: PANIC DISORDER
     Dosage: 20 MG DAY ORAL
     Route: 048
     Dates: start: 20050219, end: 20050520
  4. LORAZEPAM [Concomitant]

REACTIONS (7)
  - CONDUCTION DISORDER [None]
  - DRUG WITHDRAWAL SYNDROME [None]
  - FEELING ABNORMAL [None]
  - MOOD SWINGS [None]
  - NERVOUS SYSTEM DISORDER [None]
  - PANIC ATTACK [None]
  - SUICIDAL IDEATION [None]
